FAERS Safety Report 5655032-2 (Version None)
Quarter: 2008Q1

REPORT INFORMATION
  Report Type: 
  Country: None (occurrence: None)
  Receive Date: 20080307
  Receipt Date: 20071029
  Transmission Date: 20080703
  Serious: No
  Sender: FDA-Public Use
  Company Number: A0690312A

PATIENT
  Age: 44 Year
  Sex: Female

DRUGS (9)
  1. REQUIP [Suspect]
     Indication: RESTLESS LEGS SYNDROME
     Dosage: 1MG PER DAY
     Route: 048
     Dates: start: 20071001
  2. AMITRIPTYLINE HCL [Concomitant]
  3. XANAX [Concomitant]
  4. HYDROCODONE BITARTRATE [Concomitant]
  5. ZOLOFT [Concomitant]
  6. MULTI-VITAMIN [Concomitant]
  7. B-12 VITAMIN [Concomitant]
  8. CALCIUM [Concomitant]
  9. EYE DROPS [Concomitant]

REACTIONS (2)
  - EYE IRRITATION [None]
  - LACRIMATION INCREASED [None]
